FAERS Safety Report 10622786 (Version 1)
Quarter: 2014Q4

REPORT INFORMATION
  Report Type: Spontaneous
  Country: US (occurrence: None)
  Receive Date: 20141202
  Receipt Date: 20141202
  Transmission Date: 20150529
  Serious: No
  Sender: FDA-Public Use
  Company Number: None

PATIENT
  Age: 36 Year
  Sex: Female
  Weight: 45.36 kg

DRUGS (1)
  1. KENALOG [Suspect]
     Active Substance: TRIAMCINOLONE ACETONIDE
     Indication: PULMONARY CONGESTION

REACTIONS (3)
  - Soft tissue disorder [None]
  - Injection site reaction [None]
  - Muscle disorder [None]

NARRATIVE: CASE EVENT DATE: 20140501
